FAERS Safety Report 11202926 (Version 2)
Quarter: 2015Q2

REPORT INFORMATION
  Report Type: Report from Study
  Country: BR (occurrence: BR)
  Receive Date: 20150619
  Receipt Date: 20150622
  Transmission Date: 20150821
  Serious: Yes (Hospitalization, Disabling, Other)
  Sender: FDA-Public Use
  Company Number: BR-ABBVIE-13P-020-1047726-00

PATIENT
  Age: 86 Year
  Sex: Female
  Weight: 44 kg

DRUGS (18)
  1. HUMIRA [Suspect]
     Active Substance: ADALIMUMAB
     Route: 058
     Dates: start: 20130319
  2. TORLOS [Concomitant]
     Indication: HYPERTENSION
     Route: 048
     Dates: start: 201211
  3. OMEPRAZOLE. [Concomitant]
     Active Substance: OMEPRAZOLE
     Indication: GASTRIC DISORDER
     Dosage: 1 OR 2 CAPSULES IN THE MORNING
     Route: 048
  4. TORLOS [Concomitant]
     Route: 048
     Dates: start: 2013
  5. ALENIA [Concomitant]
     Active Substance: BUDESONIDE\FORMOTEROL FUMARATE
     Route: 055
     Dates: start: 2011
  6. DIAZEPAM. [Concomitant]
     Active Substance: DIAZEPAM
     Indication: ANXIETY
     Route: 048
     Dates: start: 2000
  7. OMEPRAZOLE. [Concomitant]
     Active Substance: OMEPRAZOLE
     Indication: PROPHYLAXIS
  8. ACEBROPHYLLINE [Concomitant]
     Indication: COUGH
     Dosage: 1 MEASURE 2 TIMES A DAY
     Route: 048
     Dates: start: 2011
  9. MOMETASONE FUROATE MONOHYDRATE. [Concomitant]
     Active Substance: MOMETASONE FUROATE MONOHYDRATE
     Indication: RHINITIS ALLERGIC
     Dosage: 1 APPLICATION A DAY
     Dates: start: 201210
  10. ESCITALOPRAM [Concomitant]
     Active Substance: ESCITALOPRAM OXALATE
     Indication: ANXIOLYTIC THERAPY
     Route: 048
     Dates: start: 201212
  11. ACETYLCYSTEINE. [Concomitant]
     Active Substance: ACETYLCYSTEINE
     Indication: FIBROSIS
     Route: 048
     Dates: start: 2011
  12. HUMIRA [Suspect]
     Active Substance: ADALIMUMAB
     Indication: RHEUMATOID ARTHRITIS
     Route: 058
     Dates: start: 20120903, end: 20121214
  13. ALENIA [Concomitant]
     Active Substance: BUDESONIDE\FORMOTEROL FUMARATE
     Indication: PNEUMONIA
     Route: 048
     Dates: start: 2011
  14. CALCIUM/VITAMIN D [Concomitant]
     Active Substance: CALCIUM\VITAMIN D
     Indication: BLOOD CALCIUM
     Route: 048
     Dates: start: 20121215
  15. STRONTIUM RANELATE [Concomitant]
     Active Substance: STRONTIUM RANELATE
     Indication: PRODUCT USED FOR UNKNOWN INDICATION
  16. PARIET [Concomitant]
     Active Substance: RABEPRAZOLE SODIUM
     Indication: GASTRIC DISORDER
     Route: 048
     Dates: start: 20121214
  17. CHOLECALCIFEROL [Concomitant]
     Active Substance: CHOLECALCIFEROL
     Indication: OSTEOPOROSIS
     Route: 048
     Dates: start: 201201
  18. CALCIUM/VITAMIN D [Concomitant]
     Active Substance: CALCIUM\VITAMIN D
     Indication: VITAMIN D

REACTIONS (8)
  - Anaemia [Recovering/Resolving]
  - Femur fracture [Recovering/Resolving]
  - Fall [Unknown]
  - Pyrexia [Recovered/Resolved]
  - Anxiety [Recovered/Resolved]
  - Osteoporosis [Recovered/Resolved]
  - Ligament sprain [Unknown]
  - Joint swelling [Recovering/Resolving]

NARRATIVE: CASE EVENT DATE: 2012
